FAERS Safety Report 11432748 (Version 3)
Quarter: 2016Q1

REPORT INFORMATION
  Report Type: Spontaneous
  Country: US (occurrence: US)
  Receive Date: 20150828
  Receipt Date: 20160127
  Transmission Date: 20160525
  Serious: Yes (Other)
  Sender: FDA-Public Use
  Company Number: US-AKORN PHARMACEUTICALS-2015AKN00262

PATIENT
  Age: 33 Year
  Sex: Female
  Weight: 70.3 kg

DRUGS (9)
  1. SYNTHROID [Concomitant]
     Active Substance: LEVOTHYROXINE SODIUM
     Indication: HYPOTHYROIDISM
  2. ZIANA [Concomitant]
     Active Substance: CLINDAMYCIN PHOSPHATE\TRETINOIN
     Indication: ACNE CYSTIC
     Dosage: UNK, 1X/DAY
     Dates: start: 20141209
  3. ABILIFY [Concomitant]
     Active Substance: ARIPIPRAZOLE
     Dosage: 5 MG, UNK
     Route: 048
  4. SERTRALINE [Concomitant]
     Active Substance: SERTRALINE HYDROCHLORIDE
     Dosage: 50 MG, UNK
     Route: 048
  5. CLINDAMYCIN 1% LOTION [Concomitant]
     Indication: ACNE CYSTIC
     Dosage: UNK UNK, 1X/DAY
     Route: 061
  6. BENZOYL PEROXIDE 10% TOPICAL CLEANSER [Concomitant]
     Indication: ACNE CYSTIC
     Dosage: UNK UNK, 2X/DAY
     Route: 061
  7. IUD NOS [Concomitant]
     Active Substance: COPPER OR LEVONORGESTREL
  8. MYORISAN [Suspect]
     Active Substance: ISOTRETINOIN
     Indication: ACNE CYSTIC
     Dosage: 40 MG, 1X/DAY
     Route: 048
     Dates: start: 20150319, end: 20150429
  9. DOXYCYCLINE HYCLATE. [Concomitant]
     Active Substance: DOXYCYCLINE HYCLATE
     Indication: ACNE CYSTIC
     Dosage: 100 MG, 1X/DAY
     Route: 048
     Dates: end: 201502

REACTIONS (5)
  - Exposure during pregnancy [Not Recovered/Not Resolved]
  - Abortion induced [Not Recovered/Not Resolved]
  - Nausea [Recovered/Resolved]
  - Injury [Unknown]
  - Abdominal pain [Recovered/Resolved]

NARRATIVE: CASE EVENT DATE: 2015
